FAERS Safety Report 8153035 (Version 2)
Quarter: 2013Q1

REPORT INFORMATION
  Report Type: Report from Study
  Country: DE (occurrence: DE)
  Receive Date: 20110923
  Receipt Date: 20130228
  Transmission Date: 20140127
  Serious: Yes (Hospitalization)
  Sender: FDA-Public Use
  Company Number: DE-BRISTOL-MYERS SQUIBB COMPANY-15405434

PATIENT
  Age: 60 Year
  Sex: Male
  Weight: 63 kg

DRUGS (3)
  1. CETUXIMAB [Suspect]
     Indication: HEAD AND NECK CANCER
     Dosage: STRENGTH:5MG/ML,INF:9?8SEP10-11NOV10?1DEC10-1DEC10?14DEC10-ONG
     Route: 042
     Dates: start: 20100908
  2. CISPLATIN FOR INJ [Suspect]
     Indication: HEAD AND NECK CANCER
     Dosage: RECENT INF ON 11NOV10?NO OF INF:4
     Route: 042
     Dates: start: 20100908, end: 20101111
  3. 5-FLUOROURACIL [Suspect]
     Indication: HEAD AND NECK CANCER
     Dosage: CONTINOUS INF FROM DAY 1 TO DAY 4 OF CYCLE?RECNT INF ON 11NOV2010?NO OF INF:4
     Route: 042
     Dates: start: 20100908, end: 20101111

REACTIONS (2)
  - Performance status decreased [Recovered/Resolved]
  - Vomiting [Recovered/Resolved]
